FAERS Safety Report 18780314 (Version 1)
Quarter: 2021Q1

REPORT INFORMATION
  Report Type: Spontaneous
  Country: US (occurrence: US)
  Receive Date: 20210122
  Receipt Date: 20210122
  Transmission Date: 20210419
  Serious: Yes (Hospitalization, Other)
  Sender: FDA-Public Use
  Company Number: None

PATIENT
  Age: 38 Year
  Sex: Male

DRUGS (6)
  1. FLONASE [Concomitant]
     Active Substance: FLUTICASONE PROPIONATE
  2. CLOZAPINE. [Suspect]
     Active Substance: CLOZAPINE
     Indication: PSYCHOTIC DISORDER
     Dosage: ?          OTHER FREQUENCY:100MG QAM 250MG HS;?
     Route: 048
  3. BENZTROPINE. [Concomitant]
     Active Substance: BENZTROPINE
  4. ATROPINE 1% [Concomitant]
     Active Substance: ATROPINE
  5. VITAMIN D3 1000 UNITS [Concomitant]
  6. ACETAMINOPHEN PRN [Concomitant]

REACTIONS (4)
  - Dyskinesia [None]
  - Constipation [None]
  - Fall [None]
  - Drug ineffective [None]

NARRATIVE: CASE EVENT DATE: 20201216
